FAERS Safety Report 24169154 (Version 1)
Quarter: 2024Q3

REPORT INFORMATION
  Report Type: Spontaneous
  Country: ES (occurrence: ES)
  Receive Date: 20240802
  Receipt Date: 20240802
  Transmission Date: 20241017
  Serious: Yes (Other)
  Sender: MYLAN
  Company Number: ES-MALLINCKRODT-T201903048

PATIENT
  Age: 56 Year
  Sex: Male

DRUGS (8)
  1. OXALIPLATIN [Suspect]
     Active Substance: OXALIPLATIN
     Indication: Cutaneous T-cell lymphoma
     Dosage: UNK
     Route: 065
  2. GEMCITABINE [Suspect]
     Active Substance: GEMCITABINE
     Indication: Cutaneous T-cell lymphoma
     Dosage: UNK
     Route: 065
  3. INTERFERON [Suspect]
     Active Substance: INTERFERON
     Indication: Cutaneous T-cell lymphoma
     Dosage: UNK
     Route: 065
  4. ADCETRIS [Suspect]
     Active Substance: BRENTUXIMAB VEDOTIN
     Indication: Cutaneous T-cell lymphoma
     Dosage: UNK
     Route: 065
  5. UVADEX [Suspect]
     Active Substance: METHOXSALEN
     Indication: Cutaneous T-cell lymphoma
     Dosage: UNK, EXTRACORPOREAL
     Route: 065
  6. PSORALEN [Suspect]
     Active Substance: PSORALEN
     Indication: Cutaneous T-cell lymphoma
     Dosage: UNK
     Route: 065
  7. BEXAROTENE [Suspect]
     Active Substance: BEXAROTENE
     Indication: Cutaneous T-cell lymphoma
     Dosage: UNK
     Route: 065
  8. ACENOCOUMAROL [Concomitant]
     Active Substance: ACENOCOUMAROL
     Indication: Protein C deficiency
     Dosage: UNK
     Route: 065

REACTIONS (2)
  - Venous thrombosis [Unknown]
  - Off label use [Unknown]
